FAERS Safety Report 8131986-X (Version None)
Quarter: 2012Q1

REPORT INFORMATION
  Report Type: 
  Country: None (occurrence: None)
  Receive Date: 20120207
  Receipt Date: 20120123
  Transmission Date: 20120608
  Serious: Yes (Other)
  Sender: FDA-Public Use
  Company Number: 2012-000276

PATIENT
  Age: 16 Year
  Sex: Male
  Weight: 74.1 kg

DRUGS (9)
  1. DORYX [Suspect]
     Indication: ACNE
     Dosage: 150 MG ONCE DAILY, ORAL
     Route: 048
     Dates: start: 20080101
  2. DORYX [Suspect]
     Indication: ACNE
     Dosage: 150 MG ONCE DAILY, ORAL
     Route: 048
     Dates: start: 20090901, end: 20100901
  3. DORYX [Suspect]
     Indication: ACNE
     Dosage: 150 MG ONCE DAILY, ORAL
     Route: 048
     Dates: start: 20110501, end: 20111001
  4. SOLODYN [Suspect]
     Indication: ACNE
     Dosage: 115 MG DAILY, ORAL
     Route: 048
     Dates: start: 20080101, end: 20110601
  5. SOLODYN [Suspect]
     Indication: ACNE
     Dosage: 115 MG DAILY, ORAL
     Route: 048
     Dates: start: 20111001, end: 20111001
  6. SULFUR (SULFUR) [Concomitant]
  7. VYVANSE [Concomitant]
  8. BENZOYL PEROXIDE (BENZOYL PEROXIDE) [Concomitant]
  9. ZIANA (CLINDAMYCIN PHOSPHATE, TRETINOIN) [Concomitant]

REACTIONS (11)
  - EAR INFECTION [None]
  - COUGH [None]
  - NASOPHARYNGITIS [None]
  - WHITE BLOOD CELL COUNT DECREASED [None]
  - AUTOIMMUNE HEPATITIS [None]
  - HEADACHE [None]
  - LYMPHADENOPATHY [None]
  - ANTINUCLEAR ANTIBODY POSITIVE [None]
  - DRY THROAT [None]
  - PHARYNGITIS [None]
  - FOLLICULITIS [None]
